FAERS Safety Report 14419943 (Version 1)
Quarter: 2018Q1

REPORT INFORMATION
  Report Type: Spontaneous
  Country: US (occurrence: US)
  Receive Date: 20180122
  Receipt Date: 20180122
  Transmission Date: 20180509
  Serious: Yes (Other)
  Sender: FDA-Public Use
  Company Number: US-DSJP-DSU-2017-146116

PATIENT

DRUGS (1)
  1. BENICAR HCT [Suspect]
     Active Substance: HYDROCHLOROTHIAZIDE\OLMESARTAN MEDOXOMIL
     Indication: PRODUCT USED FOR UNKNOWN INDICATION
     Dosage: 40/12.5 MG, UNK
     Dates: start: 20130104, end: 20151106

REACTIONS (6)
  - Gastrooesophageal reflux disease [Recovering/Resolving]
  - Diverticulum intestinal [Unknown]
  - Haematochezia [Unknown]
  - Irritable bowel syndrome [Recovering/Resolving]
  - Diverticulitis [Unknown]
  - Duodenal ulcer [Recovering/Resolving]

NARRATIVE: CASE EVENT DATE: 2015
